FAERS Safety Report 8399364-6 (Version None)
Quarter: 2012Q2

REPORT INFORMATION
  Report Type: 
  Country: None (occurrence: None)
  Receive Date: 20120531
  Receipt Date: 20120521
  Transmission Date: 20120825
  Serious: Yes (Other)
  Sender: FDA-Public Use
  Company Number: JP-ASTRAZENECA-2012SE31298

PATIENT
  Age: 83 Year
  Sex: Male
  Weight: 53.9 kg

DRUGS (10)
  1. SEROQUEL [Suspect]
     Route: 048
     Dates: end: 20120410
  2. GOODMIN [Concomitant]
     Indication: INSOMNIA
  3. UBRETID [Concomitant]
     Indication: BENIGN PROSTATIC HYPERPLASIA
  4. SEROQUEL [Suspect]
     Indication: PARKINSON'S DISEASE
     Route: 048
  5. MENEST [Concomitant]
     Indication: PARKINSON'S DISEASE
  6. LANSOPRAZOLE [Concomitant]
     Indication: GASTROOESOPHAGEAL REFLUX DISEASE
  7. SEROQUEL [Suspect]
     Indication: RESTLESSNESS
     Route: 048
  8. SEROQUEL [Suspect]
     Route: 048
     Dates: end: 20120410
  9. ASPIRIN [Concomitant]
     Indication: CEREBRAL INFARCTION
  10. FLIVASTATIN SODIUM [Concomitant]
     Indication: BENIGN PROSTATIC HYPERPLASIA

REACTIONS (4)
  - OFF LABEL USE [None]
  - HYPOGLYCAEMIA [None]
  - HYPOALBUMINAEMIA [None]
  - HYPOTHERMIA [None]
